FAERS Safety Report 22526910 (Version 1)
Quarter: 2023Q2

REPORT INFORMATION
  Report Type: Report from Study
  Country: BE (occurrence: BE)
  Receive Date: 20230606
  Receipt Date: 20230606
  Transmission Date: 20230722
  Serious: Yes (Hospitalization)
  Sender: FDA-Public Use
  Company Number: BE-Vifor Pharma-VIT-2023-03860

PATIENT
  Age: 85 Year
  Sex: Female
  Weight: 60.5 kg

DRUGS (1)
  1. DIFELIKEFALIN [Suspect]
     Active Substance: DIFELIKEFALIN
     Indication: Uraemic pruritus
     Dosage: DIFELIKEFALIN:50UG/ML
     Dates: start: 20230323, end: 20230328

REACTIONS (2)
  - Vomiting [Recovered/Resolved]
  - Nausea [Recovered/Resolved]

NARRATIVE: CASE EVENT DATE: 20230328
